FAERS Safety Report 23451483 (Version 1)
Quarter: 2024Q1

REPORT INFORMATION
  Report Type: Spontaneous
  Country: US (occurrence: US)
  Receive Date: 20240129
  Receipt Date: 20240129
  Transmission Date: 20240410
  Serious: No
  Sender: FDA-Public Use
  Company Number: US-SANOFI-01916271

PATIENT
  Age: 64 Year
  Sex: Male

DRUGS (1)
  1. TOUJEO [Suspect]
     Active Substance: INSULIN GLARGINE
     Indication: Type 2 diabetes mellitus
     Dosage: 2-12 UNITS SLIDING SCALE BID AND DRUG TREATMENT DURATION:2-3 YEARS
     Route: 065

REACTIONS (2)
  - Inappropriate schedule of product administration [Unknown]
  - Expired product administered [Unknown]
